FAERS Safety Report 4871159-7 (Version None)
Quarter: 2005Q4

REPORT INFORMATION
  Report Type: 
  Country: None (occurrence: None)
  Receive Date: 20051229
  Receipt Date: 20051209
  Transmission Date: 20060501
  Serious: Yes (Other)
  Sender: FDA-Public Use
  Company Number: USA0506100959

PATIENT
  Age: 74 Year
  Sex: Female

DRUGS (2)
  1. CYMBALTA [Suspect]
  2. WARFARIN (WARFARIN) [Concomitant]

REACTIONS (1)
  - INTERNATIONAL NORMALISED RATIO INCREASED [None]
